FAERS Safety Report 7879770-6 (Version None)
Quarter: 2011Q4

REPORT INFORMATION
  Report Type: 
  Country: None (occurrence: None)
  Receive Date: 20111101
  Receipt Date: 20111021
  Transmission Date: 20120403
  Serious: Yes (Hospitalization, Other)
  Sender: FDA-Public Use
  Company Number: JP-ELI_LILLY_AND_COMPANY-JP201104007010

PATIENT
  Sex: Male
  Weight: 63 kg

DRUGS (14)
  1. GLORIAMIN [Concomitant]
     Dosage: 0.67 G, TID
     Route: 048
     Dates: start: 20100902
  2. HYDROXOCOBALAMIN ACETATE [Concomitant]
     Dosage: 1 MG, QD
     Route: 030
     Dates: start: 20100913
  3. PANVITAN [Concomitant]
     Dosage: 1 G, QD
     Route: 048
     Dates: start: 20100913, end: 20110124
  4. LANSOPRAZOLE [Concomitant]
     Dosage: 15 MG, QD
     Route: 048
     Dates: start: 20100922
  5. ALIMTA [Suspect]
     Indication: LUNG ADENOCARCINOMA STAGE III
     Dosage: 600 MG, OTHER
     Route: 042
     Dates: start: 20100921, end: 20110107
  6. CISPLATIN [Concomitant]
     Indication: LUNG ADENOCARCINOMA STAGE III
     Dosage: 100 MG, OTHER
     Route: 042
     Dates: start: 20100921, end: 20101125
  7. LOXOPROFEN SODIUM [Concomitant]
     Dosage: 60 MG, TID
     Route: 048
     Dates: start: 20100903
  8. MAGNESIUM OXIDE [Concomitant]
     Dosage: 0.67 G, TID
     Route: 048
     Dates: start: 20100925
  9. ACDEAM [Concomitant]
     Dosage: 90 MG, TID
     Route: 048
  10. AMBROXOL HYDROCHLORIDE [Concomitant]
     Dosage: 45 MG, QD
     Route: 048
     Dates: start: 20100902
  11. SPELEAR [Concomitant]
     Dosage: 400 MG, TID
     Route: 048
     Dates: start: 20100902
  12. METHYCOBAL [Concomitant]
     Dosage: 500 UG, TID
     Route: 048
     Dates: start: 20100903
  13. LEVOFLOXACIN [Concomitant]
     Dosage: 200 MG, BID
     Route: 048
     Dates: start: 20100902
  14. SODIUM ALGINATE [Concomitant]
     Dosage: 70 MG, TID
     Route: 048
     Dates: start: 20100916

REACTIONS (4)
  - PNEUMOMEDIASTINUM [None]
  - LEUKOPENIA [None]
  - PNEUMONIA [None]
  - ORAL CANDIDIASIS [None]
